FAERS Safety Report 8354670-6 (Version None)
Quarter: 2012Q2

REPORT INFORMATION
  Report Type: 
  Country: None (occurrence: None)
  Receive Date: 20120511
  Receipt Date: 20110307
  Transmission Date: 20120825
  Serious: No
  Sender: FDA-Public Use
  Company Number: US-TEVA-2011001074

PATIENT
  Sex: Female
  Weight: 86.26 kg

DRUGS (15)
  1. KLONOPIN [Concomitant]
  2. LORAZEPAM [Concomitant]
  3. RANITIDINE [Concomitant]
  4. BOTOX [Concomitant]
     Dates: start: 20100101
  5. LITHIUM CARBONATE ER [Concomitant]
     Dates: start: 20090101
  6. LYRICA [Concomitant]
     Dates: start: 20080101
  7. LAMICTAL [Concomitant]
  8. METOPROLOL TARTRATE [Concomitant]
  9. YAZ [Concomitant]
  10. FLEXERIL [Concomitant]
  11. MOTRIN [Concomitant]
  12. NUVIGIL [Suspect]
     Indication: HYPERSOMNIA
     Dosage: 50 MILLIGRAM;
     Route: 048
     Dates: start: 20100101
  13. NUVIGIL [Suspect]
     Dosage: 100 MILLIGRAM;
     Route: 048
  14. NUVIGIL [Suspect]
     Dosage: 250 MILLIGRAM;
     Route: 048
     Dates: start: 20110101
  15. TRAZODONE HCL [Concomitant]
     Dates: start: 20110101

REACTIONS (2)
  - DRUG INEFFECTIVE FOR UNAPPROVED INDICATION [None]
  - INSOMNIA [None]
